FAERS Safety Report 20085868 (Version 4)
Quarter: 2022Q1

REPORT INFORMATION
  Report Type: Spontaneous
  Country: RU (occurrence: RU)
  Receive Date: 20211118
  Receipt Date: 20220106
  Transmission Date: 20220423
  Serious: Yes (Other)
  Sender: FDA-Public Use
  Company Number: RU-LUPIN PHARMACEUTICALS INC.-2021-22334

PATIENT
  Weight: 1.91 kg

DRUGS (13)
  1. METHYLPREDNISOLONE [Suspect]
     Active Substance: METHYLPREDNISOLONE
     Indication: Familial mediterranean fever
     Dosage: 20 MILLIGRAM, QD
     Route: 064
  2. METHYLPREDNISOLONE [Suspect]
     Active Substance: METHYLPREDNISOLONE
     Indication: Pyrexia
     Dosage: 16 MILLIGRAM, QD
     Route: 064
  3. METHYLPREDNISOLONE [Suspect]
     Active Substance: METHYLPREDNISOLONE
     Indication: Myalgia
     Dosage: 1500 MG (1500 MILLIGRAM IN TOTAL (PULSE THERAPY AND GRADUALLY STOPPED))
     Route: 064
  4. COLCHICINE [Suspect]
     Active Substance: COLCHICINE
     Indication: Familial mediterranean fever
     Dosage: 1 MILLIGRAM, QD (BEFORE PREGNANCY)
     Route: 064
     Dates: start: 2018
  5. COLCHICINE [Suspect]
     Active Substance: COLCHICINE
     Indication: Condition aggravated
     Dosage: 1.5 MILLIGRAM, QD (BEFORE PREGNANCY)
     Route: 064
  6. COLCHICINE [Suspect]
     Active Substance: COLCHICINE
     Dosage: 2 MILLIGRAM, QD (AT 22 WEEKS)
     Route: 064
     Dates: start: 2018
  7. COLCHICINE [Suspect]
     Active Substance: COLCHICINE
     Dosage: 3 MILLIGRAM, QD
     Route: 064
  8. COLCHICINE [Suspect]
     Active Substance: COLCHICINE
     Dosage: 1.5 MILLIGRAM, QD
     Route: 064
  9. ACETAMINOPHEN [Suspect]
     Active Substance: ACETAMINOPHEN
     Indication: Pyrexia
     Dosage: 500 MILLIGRAM, TID
     Route: 065
  10. ACETAMINOPHEN [Suspect]
     Active Substance: ACETAMINOPHEN
     Indication: Familial mediterranean fever
     Dosage: (UNK UNK, QD (UP TO 4 GRAM PER DAY))
     Route: 042
  11. ACETAMINOPHEN [Suspect]
     Active Substance: ACETAMINOPHEN
     Indication: Myalgia
  12. URSODIOL [Suspect]
     Active Substance: URSODIOL
     Indication: Cholestasis
     Dosage: 1000 MILLIGRAM, QD (RAPID DOSE TITRATION)
     Route: 065
  13. DEXAMETHASONE [Suspect]
     Active Substance: DEXAMETHASONE
     Indication: Prophylaxis
     Dosage: UNK
     Route: 064

REACTIONS (2)
  - Foetal exposure during pregnancy [Unknown]
  - Premature baby [Unknown]
